FAERS Safety Report 10944719 (Version 1)
Quarter: 2015Q1

REPORT INFORMATION
  Report Type: Spontaneous
  Country: US (occurrence: US)
  Receive Date: 20150323
  Receipt Date: 20150323
  Transmission Date: 20150721
  Serious: No
  Sender: FDA-Public Use
  Company Number: US-PFIZER INC-2015095753

PATIENT
  Age: 17 Year
  Sex: Female
  Weight: 63 kg

DRUGS (2)
  1. SYMBICORT [Concomitant]
     Active Substance: BUDESONIDE\FORMOTEROL FUMARATE DIHYDRATE
     Indication: FOOD ALLERGY
     Route: 055
  2. ADVIL [Suspect]
     Active Substance: IBUPROFEN
     Dosage: 1 PILL
     Dates: start: 20150314

REACTIONS (4)
  - Swelling face [Not Recovered/Not Resolved]
  - Wheezing [Not Recovered/Not Resolved]
  - Urticaria [Not Recovered/Not Resolved]
  - Pruritus generalised [Unknown]

NARRATIVE: CASE EVENT DATE: 20150314
